FAERS Safety Report 23891823 (Version 1)
Quarter: 2024Q2

REPORT INFORMATION
  Report Type: Spontaneous
  Country: US (occurrence: None)
  Receive Date: 20240524
  Receipt Date: 20240524
  Transmission Date: 20240715
  Serious: No
  Sender: FDA-Public Use
  Company Number: US-ROCHE-3402570

PATIENT
  Sex: Female
  Weight: 135.75 kg

DRUGS (5)
  1. ACTEMRA [Suspect]
     Active Substance: TOCILIZUMAB
     Indication: Rheumatoid arthritis
     Route: 042
     Dates: start: 20121024, end: 20180912
  2. ACTEMRA [Suspect]
     Active Substance: TOCILIZUMAB
     Indication: Giant cell arteritis
     Route: 042
     Dates: start: 20230419
  3. ACTEMRA [Suspect]
     Active Substance: TOCILIZUMAB
     Route: 042
     Dates: start: 20121024
  4. ACTEMRA [Suspect]
     Active Substance: TOCILIZUMAB
     Dosage: 4MG/KG 1 200MG
     Route: 042
     Dates: start: 20200722
  5. ACTEMRA [Suspect]
     Active Substance: TOCILIZUMAB
     Dosage: ONE 400MG VIAL, TWO-80MG VIALS
     Route: 042
     Dates: start: 20220207

REACTIONS (3)
  - Back pain [Unknown]
  - Off label use [Unknown]
  - Dyspnoea [Unknown]

NARRATIVE: CASE EVENT DATE: 20230705
